FAERS Safety Report 6006510-8 (Version None)
Quarter: 2008Q4

REPORT INFORMATION
  Report Type: 
  Country: None (occurrence: None)
  Receive Date: 20081217
  Receipt Date: 20081207
  Transmission Date: 20090506
  Serious: Yes (Life-Threatening, Hospitalization)
  Sender: FDA-Public Use
  Company Number: AU-AMGEN-US145934

PATIENT
  Sex: Male
  Weight: 83 kg

DRUGS (12)
  1. NEUPOGEN [Suspect]
     Indication: PERIPHERAL BLOOD STEM CELL APHERESIS
     Route: 058
     Dates: start: 20050520, end: 20050524
  2. CLOPIDOGREL BISULFATE [Concomitant]
     Dates: end: 20050525
  3. ATORVASTATIN [Concomitant]
  4. RAMIPRIL [Concomitant]
  5. FELDENE [Concomitant]
     Dates: end: 20050525
  6. FISH OIL [Concomitant]
  7. PERSANTINE [Concomitant]
     Route: 048
  8. PERHEXILINE MALEATE [Concomitant]
  9. BICOR [Concomitant]
  10. NITROGLYCERIN [Concomitant]
  11. EZETIMIBE [Concomitant]
  12. DOBUTAMINE HCL [Concomitant]

REACTIONS (1)
  - AUTOIMMUNE THROMBOCYTOPENIA [None]
